FAERS Safety Report 6834388-9 (Version None)
Quarter: 2010Q3

REPORT INFORMATION
  Report Type: 
  Country: None (occurrence: None)
  Receive Date: 20100712
  Receipt Date: 20090629
  Transmission Date: 20110219
  Serious: No
  Sender: FDA-Public Use
  Company Number: US-PFIZER INC-2007025102

PATIENT
  Sex: Female
  Weight: 117.93 kg

DRUGS (4)
  1. CHANTIX [Suspect]
     Dosage: UNK
     Dates: start: 20070101
  2. MECLIZINE [Concomitant]
     Indication: NAUSEA
  3. NEXIUM [Concomitant]
  4. BENICAR [Concomitant]

REACTIONS (4)
  - DRUG INTOLERANCE [None]
  - IRRITABILITY [None]
  - MALAISE [None]
  - NAUSEA [None]
